FAERS Safety Report 9375466 (Version 2)
Quarter: 2013Q4

REPORT INFORMATION
  Report Type: Spontaneous
  Country: FR (occurrence: FR)
  Receive Date: 20130628
  Receipt Date: 20131105
  Transmission Date: 20140711
  Serious: Yes (Other)
  Sender: FDA-Public Use
  Company Number: FR-GLAXOSMITHKLINE-B0902967A

PATIENT
  Age: 60 Year
  Sex: Female

DRUGS (5)
  1. ZOPHREN [Suspect]
     Indication: PREMEDICATION
     Dosage: 8MG CYCLIC
     Route: 042
     Dates: start: 20130311, end: 20130311
  2. CARBOPLATINE [Suspect]
     Indication: OVARIAN EPITHELIAL CANCER
     Dosage: 649MG CYCLIC
     Route: 042
     Dates: start: 20130311, end: 20130311
  3. GEMCITABINE [Suspect]
     Indication: OVARIAN EPITHELIAL CANCER
     Dosage: 1700MG CYCLIC
     Route: 042
     Dates: start: 20130311, end: 20130311
  4. PRIMPERAN [Concomitant]
     Indication: PROPHYLAXIS OF NAUSEA AND VOMITING
     Dosage: 10MG SINGLE DOSE
     Route: 048
     Dates: start: 20130311, end: 20130311
  5. KENZEN [Concomitant]

REACTIONS (1)
  - Pruritus [Recovered/Resolved]
